FAERS Safety Report 9424675 (Version 2)
Quarter: 2014Q1

REPORT INFORMATION
  Report Type: Spontaneous
  Country: US (occurrence: US)
  Receive Date: 20130729
  Receipt Date: 20140123
  Transmission Date: 20141002
  Serious: No
  Sender: FDA-Public Use
  Company Number: US-009507513-1307USA013627

PATIENT
  Age: 22 Year
  Sex: Female
  Weight: 97.51 kg

DRUGS (2)
  1. NUVARING [Suspect]
     Indication: CONTRACEPTION
     Dosage: UNK
     Route: 067
     Dates: start: 20130721
  2. NUVARING [Suspect]
     Dosage: UNK
     Dates: start: 201309

REACTIONS (10)
  - Unintended pregnancy [Unknown]
  - Device expulsion [Unknown]
  - Dyspnoea [Unknown]
  - Chest pain [Unknown]
  - Poor quality sleep [Unknown]
  - Diarrhoea [Unknown]
  - Abdominal distension [Unknown]
  - Hypoaesthesia [Unknown]
  - Fatigue [Unknown]
  - Depression [Unknown]
